FAERS Safety Report 7960851-3 (Version None)
Quarter: 2011Q4

REPORT INFORMATION
  Report Type: 
  Country: None (occurrence: None)
  Receive Date: 20111207
  Receipt Date: 20111130
  Transmission Date: 20120403
  Serious: Yes (Hospitalization)
  Sender: FDA-Public Use
  Company Number: US-AMGEN-USASP2011063733

PATIENT
  Age: 74 Year
  Sex: Female

DRUGS (2)
  1. TOVIAZ [Concomitant]
     Indication: BLADDER DISORDER
     Dosage: 8 MG, QD
  2. PROLIA [Suspect]
     Indication: OSTEOPOROSIS POSTMENOPAUSAL
     Dosage: 60 MG, Q6MO
     Dates: start: 20110622

REACTIONS (1)
  - SPINAL FRACTURE [None]
